FAERS Safety Report 15643437 (Version 1)
Quarter: 2018Q4

REPORT INFORMATION
  Report Type: Spontaneous
  Country: ES (occurrence: ES)
  Receive Date: 20181121
  Receipt Date: 20181121
  Transmission Date: 20190205
  Serious: Yes (Hospitalization, Other)
  Sender: FDA-Public Use
  Company Number: PHHY2018ES159565

PATIENT
  Age: 67 Year
  Sex: Male

DRUGS (5)
  1. AZITROMICINA [Suspect]
     Active Substance: AZITHROMYCIN DIHYDRATE
     Indication: NASAL OBSTRUCTION
     Dosage: 500 MG, Q24H
     Route: 048
     Dates: start: 20180910, end: 20180911
  2. ADIRO [Concomitant]
     Active Substance: ASPIRIN
     Indication: PRODUCT USED FOR UNKNOWN INDICATION
     Dosage: 300 MG, Q24H
     Route: 048
  3. OMEPRAZOL [Concomitant]
     Active Substance: OMEPRAZOLE
     Indication: PRODUCT USED FOR UNKNOWN INDICATION
     Route: 065
  4. IBUPROFEN. [Concomitant]
     Active Substance: IBUPROFEN
     Indication: PRODUCT USED FOR UNKNOWN INDICATION
     Dosage: HISTORIA ACTUAL DE INFORME DE ALTA DE MEDICINA INTERNA: ^HA ESTADO TOMANDO 1-2CP DIARIOS EN LA ?LTIM
     Route: 048
  5. CAPOTEN [Concomitant]
     Active Substance: CAPTOPRIL
     Indication: PRODUCT USED FOR UNKNOWN INDICATION
     Dosage: 25 MG, Q12H
     Route: 048

REACTIONS (4)
  - Bradycardia [Recovered/Resolved]
  - Hypertensive crisis [Recovered/Resolved]
  - Anaphylactic reaction [Recovered/Resolved]
  - Chest pain [Recovered/Resolved]

NARRATIVE: CASE EVENT DATE: 20180910
